FAERS Safety Report 11077036 (Version 2)
Quarter: 2015Q2

REPORT INFORMATION
  Report Type: Spontaneous
  Country: US (occurrence: US)
  Receive Date: 20150429
  Receipt Date: 20150525
  Transmission Date: 20150821
  Serious: No
  Sender: FDA-Public Use
  Company Number: US-JNJFOC-20131201010

PATIENT
  Age: 85 Year
  Sex: Male
  Weight: 63.5 kg

DRUGS (4)
  1. AMOXICILLIN. [Concomitant]
     Active Substance: AMOXICILLIN
     Indication: STAPHYLOCOCCAL INFECTION
     Dosage: FOR 8 YEARS
     Route: 065
  2. IMODIUM MULTI-SYMPTOM RELIEF [Suspect]
     Active Substance: DIMETHICONE\LOPERAMIDE HYDROCHLORIDE
     Indication: DIARRHOEA
     Dosage: TWICE
     Route: 048
     Dates: start: 20131202
  3. IMODIUM MULTI-SYMPTOM RELIEF [Suspect]
     Active Substance: DIMETHICONE\LOPERAMIDE HYDROCHLORIDE
     Indication: DIARRHOEA
     Dosage: TWICE
     Route: 048
  4. SULFAMETHOXAZOLE-TRIMETHOPRIM (SMZ) [Concomitant]
     Active Substance: SULFAMETHOXAZOLE\TRIMETHOPRIM
     Indication: STAPHYLOCOCCAL INFECTION
     Dosage: FOR 8 YEARS
     Route: 065

REACTIONS (1)
  - Peripheral swelling [Not Recovered/Not Resolved]

NARRATIVE: CASE EVENT DATE: 20131202
